FAERS Safety Report 19647394 (Version 1)
Quarter: 2021Q3

REPORT INFORMATION
  Report Type: Report from Study
  Country: CA (occurrence: CA)
  Receive Date: 20210802
  Receipt Date: 20210802
  Transmission Date: 20211014
  Serious: Yes (Hospitalization, Other)
  Sender: FDA-Public Use
  Company Number: CA-SAMSUNG BIOEPIS-SB-2021-07845

PATIENT
  Age: 60 Year
  Sex: Female

DRUGS (6)
  1. HADLIMA [Suspect]
     Active Substance: ADALIMUMAB-BWWD
     Dosage: AT WEEK TWO
     Route: 065
  2. LAXADAY [Concomitant]
     Indication: PRODUCT USED FOR UNKNOWN INDICATION
     Dosage: UNKNOWN
     Route: 065
  3. HADLIMA [Suspect]
     Active Substance: ADALIMUMAB-BWWD
     Indication: CROHN^S DISEASE
     Dosage: AT WEEK ZERO
     Route: 065
     Dates: start: 20210319
  4. CONSTELLA [Concomitant]
     Active Substance: LINACLOTIDE
     Indication: PRODUCT USED FOR UNKNOWN INDICATION
     Dosage: UNKNOWN
     Route: 065
  5. HADLIMA [Suspect]
     Active Substance: ADALIMUMAB-BWWD
     Dosage: REINDUCTION DOSE
     Route: 065
     Dates: start: 20210716
  6. HADLIMA [Suspect]
     Active Substance: ADALIMUMAB-BWWD
     Route: 065

REACTIONS (36)
  - Faeces discoloured [Unknown]
  - Decreased appetite [Unknown]
  - Hyperhidrosis [Unknown]
  - Arthritis [Unknown]
  - Injection site warmth [Unknown]
  - Postoperative adhesion [Unknown]
  - Constipation [Not Recovered/Not Resolved]
  - Nausea [Not Recovered/Not Resolved]
  - Urine odour abnormal [Unknown]
  - Musculoskeletal chest pain [Not Recovered/Not Resolved]
  - Epistaxis [Unknown]
  - Dyspnoea [Unknown]
  - Blood glucose abnormal [Unknown]
  - Haematochezia [Unknown]
  - Anxiety [Unknown]
  - Paraesthesia [Unknown]
  - Abdominal pain upper [Recovered/Resolved]
  - Paraesthesia oral [Unknown]
  - Taste disorder [Unknown]
  - Urinary incontinence [Unknown]
  - Localised oedema [Not Recovered/Not Resolved]
  - Breast pain [Not Recovered/Not Resolved]
  - Back pain [Not Recovered/Not Resolved]
  - Pain in extremity [Not Recovered/Not Resolved]
  - Neurogenic shock [Unknown]
  - Diarrhoea [Not Recovered/Not Resolved]
  - Injection site pain [Unknown]
  - Pollakiuria [Unknown]
  - Pelvic pain [Unknown]
  - Breast oedema [Not Recovered/Not Resolved]
  - Accidental exposure to product [Unknown]
  - Exposure via skin contact [Unknown]
  - Oedema peripheral [Not Recovered/Not Resolved]
  - Hot flush [Unknown]
  - Injection site haemorrhage [Unknown]
  - Fatigue [Not Recovered/Not Resolved]

NARRATIVE: CASE EVENT DATE: 20210319
